FAERS Safety Report 4602558-6 (Version None)
Quarter: 2005Q1

REPORT INFORMATION
  Report Type: 
  Country: None (occurrence: None)
  Receive Date: 20050307
  Receipt Date: 20050218
  Transmission Date: 20050727
  Serious: Yes (Hospitalization)
  Sender: FDA-Public Use
  Company Number: 2005BI002746

PATIENT
  Age: 66 Year
  Sex: Female
  Weight: 86.1834 kg

DRUGS (4)
  1. AVONEX [Suspect]
     Indication: MULTIPLE SCLEROSIS
     Dosage: 30 UG; QW; IM
     Route: 030
     Dates: start: 19960101, end: 20030101
  2. AVONEX [Suspect]
     Indication: MULTIPLE SCLEROSIS
     Dosage: 30 UG; QW; IM
     Route: 030
     Dates: start: 20030101
  3. ACCUPRIL [Concomitant]
  4. DITROPAN XL [Concomitant]

REACTIONS (7)
  - ARTHRITIS INFECTIVE [None]
  - DERMATITIS ALLERGIC [None]
  - DRUG HYPERSENSITIVITY [None]
  - FALL [None]
  - JOINT INJURY [None]
  - NASOPHARYNGITIS [None]
  - STAPHYLOCOCCAL INFECTION [None]
